FAERS Safety Report 7387181-5 (Version None)
Quarter: 2011Q1

REPORT INFORMATION
  Report Type: 
  Country: None (occurrence: None)
  Receive Date: 20110331
  Receipt Date: 20110321
  Transmission Date: 20110831
  Serious: Yes (Hospitalization)
  Sender: FDA-Public Use
  Company Number: B0707506A

PATIENT
  Sex: Female

DRUGS (10)
  1. ARIXTRA [Suspect]
     Dosage: 7.5MG PER DAY
     Route: 065
     Dates: start: 20110107, end: 20110217
  2. FORLAX [Concomitant]
     Dosage: 2UNIT PER DAY
     Route: 065
  3. INIPOMP [Concomitant]
     Dosage: 40MG PER DAY
     Route: 065
  4. LEXOMIL [Concomitant]
     Dosage: 1UNIT PER DAY
     Route: 065
  5. IMOVANE [Concomitant]
     Dosage: .5UNIT PER DAY
     Route: 065
  6. OROCAL D3 [Concomitant]
     Dosage: 1UNIT PER DAY
     Route: 065
  7. SEROPLEX [Concomitant]
     Dosage: 10MG PER DAY
     Route: 065
  8. FORTZAAR [Concomitant]
     Dosage: 1UNIT PER DAY
     Route: 065
  9. SPASFON [Concomitant]
     Dosage: 2TAB THREE TIMES PER DAY
     Route: 048
  10. OXYCONTIN [Concomitant]
     Dosage: 20MG PER DAY
     Route: 065

REACTIONS (5)
  - DELIRIUM [None]
  - SUBARACHNOID HAEMORRHAGE [None]
  - CONFUSIONAL STATE [None]
  - INCORRECT DRUG ADMINISTRATION DURATION [None]
  - HALLUCINATION [None]
